FAERS Safety Report 8343509-0 (Version None)
Quarter: 2012Q2

REPORT INFORMATION
  Report Type: 
  Country: None (occurrence: None)
  Receive Date: 20120508
  Receipt Date: 20120504
  Transmission Date: 20120825
  Serious: Yes (Hospitalization, Other)
  Sender: FDA-Public Use
  Company Number: PHHY2012GB000976

PATIENT
  Age: 20 Year
  Sex: Female

DRUGS (6)
  1. PREDNISOLONE [Suspect]
     Indication: DYSPNOEA
  2. AMOXICILLIN [Suspect]
     Indication: COUGH
     Dosage: 500 MG, TID
     Dates: start: 20111226, end: 20111231
  3. SYMBICORT [Suspect]
     Indication: ASTHMA
  4. AMOXICILLIN [Suspect]
     Indication: DYSPNOEA
  5. PREDNISOLONE [Suspect]
     Indication: COUGH
     Dosage: 5 MG, UNK
     Dates: start: 20111226, end: 20111226
  6. ALBUTEROL [Suspect]
     Indication: ASTHMA

REACTIONS (4)
  - MEDICATION ERROR [None]
  - MATERNAL EXPOSURE DURING PREGNANCY [None]
  - EXPIRED DRUG ADMINISTERED [None]
  - PNEUMONIA [None]
